FAERS Safety Report 20661236 (Version 3)
Quarter: 2022Q2

REPORT INFORMATION
  Report Type: Report from Study
  Country: FR (occurrence: FR)
  Receive Date: 20220401
  Receipt Date: 20220420
  Transmission Date: 20220721
  Serious: Yes (Hospitalization, Other)
  Sender: FDA-Public Use
  Company Number: FR-ABBVIE-22K-056-4339829-00

PATIENT
  Age: 74 Year
  Sex: Female

DRUGS (4)
  1. CARBIDOPA\LEVODOPA [Suspect]
     Active Substance: CARBIDOPA\LEVODOPA
     Indication: Parkinson^s disease
     Route: 050
     Dates: start: 20220315
  2. CARBIDOPA\LEVODOPA [Suspect]
     Active Substance: CARBIDOPA\LEVODOPA
     Dosage: THE DAILY CONTINUOUS FLOW RATE WAS INCREASED BY 0.2 ML/H
     Route: 050
     Dates: start: 2022
  3. CLOZAPINE [Concomitant]
     Active Substance: CLOZAPINE
     Indication: Product used for unknown indication
     Route: 048
  4. CLOZAPINE [Concomitant]
     Active Substance: CLOZAPINE
     Dosage: INCREASED TO 1 TABLET AT NIGHT
     Route: 048

REACTIONS (11)
  - General physical health deterioration [Unknown]
  - Movement disorder [Unknown]
  - Productive cough [Unknown]
  - Influenza [Unknown]
  - Mobility decreased [Unknown]
  - Gait inability [Unknown]
  - Sluggishness [Unknown]
  - Asthenia [Unknown]
  - Fatigue [Unknown]
  - Agitation [Unknown]
  - Extra dose administered [Unknown]

NARRATIVE: CASE EVENT DATE: 20220301
